FAERS Safety Report 8770841 (Version 3)
Quarter: 2014Q2

REPORT INFORMATION
  Report Type: Spontaneous
  Country: FR (occurrence: FR)
  Receive Date: 20120906
  Receipt Date: 20131017
  Transmission Date: 20141212
  Serious: Yes (Hospitalization)
  Sender: FDA-Public Use
  Company Number: FR-PFIZER INC-2012216859

PATIENT
  Age: 35 Year
  Sex: Female

DRUGS (2)
  1. SOLU-MEDROL [Suspect]
  2. GADOLINIUM [Suspect]

REACTIONS (5)
  - Multiple sclerosis relapse [Unknown]
  - Urticaria [Unknown]
  - Pruritus [Unknown]
  - Papule [Unknown]
  - Pain of skin [Unknown]
